FAERS Safety Report 23920071 (Version 1)
Quarter: 2024Q2

REPORT INFORMATION
  Report Type: Spontaneous
  Country: US (occurrence: US)
  Receive Date: 20240530
  Receipt Date: 20240530
  Transmission Date: 20240715
  Serious: Yes (Other)
  Sender: FDA-Public Use
  Company Number: US-ELI_LILLY_AND_COMPANY-US202405011857

PATIENT
  Age: 62 Year
  Sex: Female

DRUGS (1)
  1. TALTZ [Suspect]
     Active Substance: IXEKIZUMAB
     Indication: Psoriatic arthropathy
     Dosage: 80 MG, OTHER, EVERY 4 WEEKS
     Route: 058

REACTIONS (5)
  - Hepatic cirrhosis [Unknown]
  - Tooth disorder [Unknown]
  - Mastication disorder [Unknown]
  - Dysphagia [Unknown]
  - Weight decreased [Unknown]
